FAERS Safety Report 22219284 (Version 1)
Quarter: 2023Q2

REPORT INFORMATION
  Report Type: Spontaneous
  Country: GB (occurrence: GB)
  Receive Date: 20230417
  Receipt Date: 20230417
  Transmission Date: 20230721
  Serious: Yes (Other)
  Sender: FDA-Public Use
  Company Number: None

PATIENT
  Age: 52 Year
  Sex: Female

DRUGS (1)
  1. BUPRENORPHINE [Suspect]
     Active Substance: BUPRENORPHINE
     Indication: Product used for unknown indication
     Dosage: 20 MICROGRAM (20MICROGRAMS/HOUR)
     Route: 065
     Dates: start: 20230330

REACTIONS (3)
  - Disorientation [Unknown]
  - Confusional state [Recovered/Resolved]
  - Nausea [Recovered/Resolved]
